FAERS Safety Report 9605684 (Version 2)
Quarter: 2013Q4

REPORT INFORMATION
  Report Type: Report from Study
  Country: FR (occurrence: FR)
  Receive Date: 20131008
  Receipt Date: 20131122
  Transmission Date: 20140711
  Serious: Yes (Death, Other)
  Sender: FDA-Public Use
  Company Number: FR-CELGENEUS-056-C4047-13094030

PATIENT
  Age: 59 Year
  Sex: Male
  Weight: 67 kg

DRUGS (11)
  1. CC-4047 [Suspect]
     Indication: PLASMA CELL MYELOMA
     Dosage: 4 MILLIGRAM
     Route: 048
     Dates: start: 20130222
  2. CC-4047 [Suspect]
     Dosage: 4 MILLIGRAM
     Route: 048
     Dates: start: 20130518, end: 20130607
  3. DEXAMETHASONE [Concomitant]
     Indication: PLASMA CELL MYELOMA
     Dosage: 40 MILLIGRAM
     Route: 065
     Dates: start: 20130222
  4. DEXAMETHASONE [Concomitant]
     Dosage: 40 MILLIGRAM
     Route: 065
     Dates: end: 20130607
  5. LOVENOX [Concomitant]
     Indication: PROPHYLAXIS
     Dosage: 2.4
     Route: 065
  6. ZOMETA [Concomitant]
     Indication: PLASMA CELL MYELOMA
     Dosage: 4 MILLIGRAM
     Route: 041
  7. PLAVIX [Concomitant]
     Indication: PROPHYLAXIS
     Route: 065
  8. OROCAL D3 [Concomitant]
     Indication: PLASMA CELL MYELOMA
     Route: 065
  9. ZELITREX [Concomitant]
     Indication: PLASMA CELL MYELOMA
     Route: 065
  10. ORACILLINE [Concomitant]
     Indication: PLASMA CELL MYELOMA
     Route: 065
  11. EPO [Concomitant]
     Indication: PRODUCT USED FOR UNKNOWN INDICATION
     Route: 065

REACTIONS (4)
  - Pancytopenia [Not Recovered/Not Resolved]
  - Plasma cell leukaemia [Fatal]
  - Neutrophil count decreased [Unknown]
  - Platelet count decreased [Unknown]
